FAERS Safety Report 6640061-2 (Version None)
Quarter: 2010Q1

REPORT INFORMATION
  Report Type: 
  Country: None (occurrence: None)
  Receive Date: 20100318
  Receipt Date: 20100312
  Transmission Date: 20100710
  Serious: Yes (Life-Threatening, Hospitalization)
  Sender: FDA-Public Use
  Company Number: FR-SANOFI-AVENTIS-2010SA014095

PATIENT
  Age: 87 Year
  Sex: Female

DRUGS (13)
  1. LASILIX [Suspect]
     Indication: DRUG USE FOR UNKNOWN INDICATION
     Route: 048
     Dates: start: 20100210, end: 20100302
  2. ALLOPURINOL [Suspect]
     Indication: DRUG USE FOR UNKNOWN INDICATION
     Route: 048
     Dates: start: 20100210, end: 20100302
  3. DIAMICRON [Suspect]
     Indication: DRUG USE FOR UNKNOWN INDICATION
     Route: 048
     Dates: start: 20100210
  4. FENOFIBRATE [Suspect]
     Indication: DRUG USE FOR UNKNOWN INDICATION
     Route: 048
     Dates: start: 20100210
  5. COTRIATEC, COMPRIME [Concomitant]
     Dates: end: 20100210
  6. ASPEGIC 1000 [Concomitant]
     Dates: end: 20100210
  7. TAHOR [Concomitant]
     Dates: end: 20100210
  8. VASTAREL ^SERVIER^ [Concomitant]
     Dates: end: 20100210
  9. NOVONORM [Concomitant]
     Dates: end: 20100210
  10. LANTUS [Concomitant]
  11. REMINYL /UNK/ [Concomitant]
  12. TRIATEC [Concomitant]
     Dates: start: 20100210
  13. KARDEGIC [Concomitant]
     Dates: start: 20100210

REACTIONS (1)
  - TOXIC EPIDERMAL NECROLYSIS [None]
